FAERS Safety Report 5589395-3 (Version None)
Quarter: 2008Q1

REPORT INFORMATION
  Report Type: 
  Country: None (occurrence: None)
  Receive Date: 20080109
  Receipt Date: 20071227
  Transmission Date: 20080703
  Serious: Yes (Other)
  Sender: FDA-Public Use
  Company Number: 2008000039

PATIENT
  Age: 85 Year
  Sex: Female

DRUGS (2)
  1. MACUGEN [Suspect]
     Indication: MACULAR DEGENERATION
     Dosage: (0.3 MG), INTRA-VITREAL
  2. FOSAMAX [Concomitant]

REACTIONS (4)
  - AORTIC ANEURYSM [None]
  - BLOOD PRESSURE SYSTOLIC INCREASED [None]
  - DYSPHONIA [None]
  - VERTIGO [None]
